FAERS Safety Report 7428421-3 (Version None)
Quarter: 2011Q2

REPORT INFORMATION
  Report Type: 
  Country: None (occurrence: None)
  Receive Date: 20110421
  Receipt Date: 20110411
  Transmission Date: 20111010
  Serious: Yes (Hospitalization, Disabling)
  Sender: FDA-Public Use
  Company Number: PHFR2011GB01386

PATIENT
  Age: 77 Year
  Sex: Female

DRUGS (9)
  1. CITALOPRAM HYDROBROMIDE [Concomitant]
     Dosage: 30 MG, UNK
  2. CLOPIDOGREL [Concomitant]
     Dosage: 75 MG, UNK
  3. SERETIDE [Concomitant]
     Dosage: UNK DF, UNK
  4. ACLASTA [Suspect]
     Indication: OSTEOPOROSIS
     Dosage: 5 MG
     Route: 042
     Dates: start: 20101014
  5. SIMVASTATIN [Concomitant]
     Dosage: 20 MG, UNK
  6. SOLIFENACIN [Concomitant]
     Dosage: UNK DF, UNK
  7. TIOTROPIUM BROMIDE [Concomitant]
     Dosage: UNK DF, UNK
  8. CANDESARTAN [Concomitant]
     Dosage: 8 MG, UNK
  9. FOLIC ACID [Concomitant]
     Dosage: 5 MG, UNK

REACTIONS (6)
  - ACROCHORDON [None]
  - HYPERKERATOSIS [None]
  - DYSPNOEA [None]
  - ALOPECIA [None]
  - HEADACHE [None]
  - MYALGIA [None]
